FAERS Safety Report 14944915 (Version 2)
Quarter: 2018Q3

REPORT INFORMATION
  Report Type: Spontaneous
  Country: BR (occurrence: BR)
  Receive Date: 20180529
  Receipt Date: 20180917
  Transmission Date: 20181010
  Serious: Yes (Other)
  Sender: FDA-Public Use
  Company Number: BR-ABBVIE-18P-020-2369314-00

PATIENT
  Age: 1 Year
  Sex: Female

DRUGS (1)
  1. DEPAKENE [Suspect]
     Active Substance: VALPROIC ACID
     Indication: SEIZURE
     Dosage: START DATE: LATE FEB?2018?END DATE: ABOUT 1 MONTH AGO
     Route: 048
     Dates: start: 201802, end: 201808

REACTIONS (8)
  - Seizure [Recovered/Resolved]
  - Listless [Recovered/Resolved]
  - Drug ineffective [Unknown]
  - Nausea [Recovered/Resolved]
  - Liquid product physical issue [Unknown]
  - Tremor [Recovered/Resolved]
  - Drug administered to patient of inappropriate age [Unknown]
  - Muscle spasms [Recovered/Resolved]

NARRATIVE: CASE EVENT DATE: 20180523
